FAERS Safety Report 6230699-9 (Version None)
Quarter: 2009Q2

REPORT INFORMATION
  Report Type: 
  Country: None (occurrence: None)
  Receive Date: 20090616
  Receipt Date: 20090610
  Transmission Date: 20091009
  Serious: Yes (Hospitalization)
  Sender: FDA-Public Use
  Company Number: RU-BRISTOL-MYERS SQUIBB COMPANY-14658678

PATIENT
  Age: 25 Year
  Sex: Female
  Weight: 45 kg

DRUGS (3)
  1. ABILIFY [Suspect]
     Route: 048
     Dates: start: 20090520, end: 20090531
  2. FLUVOXAMINE MALEATE [Suspect]
     Dosage: BEFORE SLEEPING
     Dates: start: 20090520
  3. TRUXAL [Suspect]
     Dosage: BEFORE SLEEPING
     Dates: start: 20090520

REACTIONS (2)
  - CIRCULATORY COLLAPSE [None]
  - PNEUMONIA [None]
